FAERS Safety Report 14117294 (Version 2)
Quarter: 2017Q4

REPORT INFORMATION
  Report Type: Report from Study
  Country: AT (occurrence: AT)
  Receive Date: 20171023
  Receipt Date: 20171101
  Transmission Date: 20180321
  Serious: Yes (Other)
  Sender: FDA-Public Use
  Company Number: AT-GILEAD-2017-0300262

PATIENT
  Sex: Male

DRUGS (2)
  1. ELVITEGRAVIR/COBICISTAT/EMTRICITABINE/TENOFOVIR ALAFENAMIDE [Suspect]
     Active Substance: COBICISTAT\ELVITEGRAVIR\EMTRICITABINE\TENOFOVIR
     Indication: PRODUCT USED FOR UNKNOWN INDICATION
     Dosage: 1 DF, UNK
     Route: 048
  2. CALCIUM [Concomitant]
     Active Substance: CALCIUM
     Route: 048

REACTIONS (2)
  - Blood HIV RNA increased [Recovered/Resolved]
  - Drug ineffective [Recovered/Resolved]
